FAERS Safety Report 20541473 (Version 1)
Quarter: 2022Q1

REPORT INFORMATION
  Report Type: Spontaneous
  Country: FR (occurrence: FR)
  Receive Date: 20220302
  Receipt Date: 20220302
  Transmission Date: 20220423
  Serious: Yes (Other)
  Sender: FDA-Public Use
  Company Number: None

PATIENT
  Age: 23 Year
  Sex: Male

DRUGS (6)
  1. PREGABALIN [Suspect]
     Active Substance: PREGABALIN
     Dosage: 1200 MG, DAILY (NOTION OF 1200 MG/DAY SHARED ORALLY AND NASALLY)
     Route: 048
     Dates: start: 2014, end: 2018
  2. PREGABALIN [Suspect]
     Active Substance: PREGABALIN
     Dosage: 1200 MG, DAILY (NOTION OF 1200 MG/DAY SHARED ORALLY AND NASALLY)
     Route: 045
     Dates: start: 2014, end: 2018
  3. RIVOTRIL [Suspect]
     Active Substance: CLONAZEPAM
     Dosage: UNK, DAILY
     Route: 065
  4. CANNABIS SATIVA SUBSP. INDICA TOP [Suspect]
     Active Substance: CANNABIS SATIVA SUBSP. INDICA TOP
     Dosage: UNK, DAILY
     Route: 065
  5. COCAINE [Suspect]
     Active Substance: COCAINE
     Dosage: UNK, DAILY
     Route: 065
  6. ALCOHOL [Concomitant]
     Active Substance: ALCOHOL
     Dosage: UNK, DAILY
     Route: 065

REACTIONS (2)
  - Drug abuse [Unknown]
  - Intentional product misuse [Unknown]
